FAERS Safety Report 17807172 (Version 2)
Quarter: 2020Q2

REPORT INFORMATION
  Report Type: Other
  Country: ES (occurrence: ES)
  Receive Date: 20200520
  Receipt Date: 20200611
  Transmission Date: 20200714
  Serious: Yes (Other)
  Sender: FDA-Public Use
  Company Number: ES-DEXPHARM-20200404

PATIENT
  Age: 82 Year
  Sex: Female

DRUGS (7)
  1. SERTRALINE [Suspect]
     Active Substance: SERTRALINE HYDROCHLORIDE
  2. AMLODIPINE/ VALSARTAN [Suspect]
     Active Substance: AMLODIPINE\VALSARTAN
     Dosage: 5/160 MG AT BREAKFAST
  3. OMEPRAZOLE. [Suspect]
     Active Substance: OMEPRAZOLE
  4. SIMVASTATIN. [Suspect]
     Active Substance: SIMVASTATIN
     Dosage: AT DINNER
  5. BROMAZEPAM [Suspect]
     Active Substance: BROMAZEPAM
  6. AMLODIPINE [Suspect]
     Active Substance: AMLODIPINE BESYLATE
     Dosage: AT DINNER
  7. ASPIRIN. [Suspect]
     Active Substance: ASPIRIN

REACTIONS (1)
  - Parkinsonism [Recovered/Resolved]
